FAERS Safety Report 5384825-4 (Version None)
Quarter: 2007Q3

REPORT INFORMATION
  Report Type: 
  Country: None (occurrence: None)
  Receive Date: 20070711
  Receipt Date: 20070702
  Transmission Date: 20080115
  Serious: Yes (Other)
  Sender: FDA-Public Use
  Company Number: JP-MERCK-0706USA04295

PATIENT
  Age: 78 Year
  Sex: Female
  Weight: 56 kg

DRUGS (8)
  1. FOSAMAX [Suspect]
     Indication: OSTEOPOROSIS
     Route: 048
     Dates: start: 20070619, end: 20070601
  2. ASPARA [Concomitant]
     Indication: OSTEOPOROSIS
     Route: 048
     Dates: start: 20070615, end: 20070619
  3. ALFAROL [Concomitant]
     Indication: OSTEOPOROSIS
     Route: 065
     Dates: start: 20070615, end: 20070619
  4. LOXONIN [Concomitant]
     Indication: ANALGESIC THERAPY
     Route: 048
     Dates: start: 20070615, end: 20070619
  5. MUCOSTA [Concomitant]
     Indication: PROPHYLAXIS AGAINST GASTROINTESTINAL ULCER
     Route: 048
     Dates: start: 20070615, end: 20070619
  6. [THERAPY UNSPECIFIED] [Concomitant]
     Route: 042
  7. NEUROTROPIN [Concomitant]
     Route: 042
  8. ELCITONIN [Concomitant]
     Route: 030

REACTIONS (3)
  - PRURITUS [None]
  - RASH [None]
  - SWELLING [None]
